FAERS Safety Report 8998055 (Version 1)
Quarter: 2013Q1

REPORT INFORMATION
  Report Type: Spontaneous
  Country: FR (occurrence: FR)
  Receive Date: 20130104
  Receipt Date: 20130104
  Transmission Date: 20140127
  Serious: Yes (Life-Threatening, Hospitalization)
  Sender: FDA-Public Use
  Company Number: PHHY2013FR001183

PATIENT
  Age: 52 Year
  Sex: Female
  Weight: 50 kg

DRUGS (4)
  1. DOCETAXEL [Suspect]
     Indication: LUNG NEOPLASM MALIGNANT
     Dosage: 75 MG/M2, EVERY 21 DAYS
     Dates: start: 20120726
  2. BEVACIZUMAB [Suspect]
     Indication: LUNG NEOPLASM MALIGNANT
     Dosage: 7.5 MG/KG, EVERY 21 DAYS
     Route: 042
     Dates: start: 20101217
  3. BEVACIZUMAB [Suspect]
     Dosage: 7.5 MG/KG, EVERY THREE WEEKS
     Route: 042
     Dates: start: 20120927
  4. TANGANIL [Concomitant]
     Dates: start: 2012

REACTIONS (2)
  - Alcohol poisoning [Recovered/Resolved]
  - Suicide attempt [Recovered/Resolved]
